FAERS Safety Report 4673846-2 (Version None)
Quarter: 2005Q2

REPORT INFORMATION
  Report Type: 
  Country: None (occurrence: None)
  Receive Date: 20050524
  Receipt Date: 20050511
  Transmission Date: 20051028
  Serious: Yes (Other)
  Sender: FDA-Public Use
  Company Number: GBS050417230

PATIENT
  Age: 17 Year
  Sex: Male
  Weight: 72 kg

DRUGS (2)
  1. STRATTERA [Suspect]
     Indication: ATTENTION DEFICIT/HYPERACTIVITY DISORDER
     Dosage: 80 MG DAY
     Dates: start: 20050225, end: 20050320
  2. CANNABIS [Concomitant]

REACTIONS (8)
  - CHROMATURIA [None]
  - HEPATOTOXICITY [None]
  - JAUNDICE [None]
  - MALAISE [None]
  - NAUSEA [None]
  - OCULAR ICTERUS [None]
  - SOMNOLENCE [None]
  - TREATMENT NONCOMPLIANCE [None]
